FAERS Safety Report 5207123-8 (Version None)
Quarter: 2007Q1

REPORT INFORMATION
  Report Type: 
  Country: None (occurrence: None)
  Receive Date: 20070110
  Receipt Date: 20061228
  Transmission Date: 20070707
  Serious: Yes (Other)
  Sender: FDA-Public Use
  Company Number: 2006SP006286

PATIENT
  Age: 9 Year
  Sex: Male
  Weight: 29.9374 kg

DRUGS (1)
  1. CLARINEX [Suspect]
     Indication: SINUS CONGESTION
     Dosage: 2.5 MG; PO
     Route: 048
     Dates: start: 20061108

REACTIONS (4)
  - CHILLS [None]
  - CRYING [None]
  - EMOTIONAL DISORDER [None]
  - MUSCLE TWITCHING [None]
